FAERS Safety Report 7137578-3 (Version None)
Quarter: 2010Q4

REPORT INFORMATION
  Report Type: 
  Country: None (occurrence: None)
  Receive Date: 20101119
  Receipt Date: 20101021
  Transmission Date: 20110411
  Serious: Yes (Hospitalization)
  Sender: FDA-Public Use
  Company Number: 54973

PATIENT
  Age: 12 Month
  Sex: Female

DRUGS (1)
  1. HYLAND'S TEETHING TABLETS [Suspect]
     Indication: TEETHING
     Dosage: 1 TAB QD OR QOD PM/1 MO

REACTIONS (4)
  - CYANOSIS [None]
  - PAIN [None]
  - PYREXIA [None]
  - RHINORRHOEA [None]
